FAERS Safety Report 11578640 (Version 1)
Quarter: 2015Q3

REPORT INFORMATION
  Report Type: Spontaneous
  Country: US (occurrence: US)
  Receive Date: 20150916
  Receipt Date: 20150916
  Transmission Date: 20151125
  Serious: No
  Sender: FDA-Public Use
  Company Number: US-ELI_LILLY_AND_COMPANY-US201307003472

PATIENT
  Sex: Female
  Weight: 55.78 kg

DRUGS (2)
  1. HUMALOG MIX75/25 [Suspect]
     Active Substance: INSULIN LISPRO
     Dosage: UNK, UNKNOWN
     Route: 058
  2. NOVOLOG [Suspect]
     Active Substance: INSULIN ASPART
     Dosage: UNK, UNKNOWN
     Route: 058

REACTIONS (3)
  - Blood glucose increased [Unknown]
  - Wrong drug administered [Unknown]
  - Wrong technique in product usage process [Unknown]
